FAERS Safety Report 14760048 (Version 11)
Quarter: 2018Q4

REPORT INFORMATION
  Report Type: Spontaneous
  Country: US (occurrence: US)
  Receive Date: 20180413
  Receipt Date: 20181108
  Transmission Date: 20190204
  Serious: Yes (Hospitalization)
  Sender: FDA-Public Use
  Company Number: US-ACTELION-A-NJ2018-170177

PATIENT
  Age: 51 Year
  Sex: Male

DRUGS (6)
  1. REMODULIN [Suspect]
     Active Substance: TREPROSTINIL
     Indication: PRODUCT USED FOR UNKNOWN INDICATION
     Dosage: 50.7 NG/KG, PER MIN
     Route: 058
  2. SILDENAFIL. [Concomitant]
     Active Substance: SILDENAFIL
     Dosage: 40 MG, TID
     Dates: start: 20180515
  3. OPSUMIT [Suspect]
     Active Substance: MACITENTAN
     Indication: PULMONARY HYPERTENSION
     Dosage: 10 MG, QD
     Route: 048
     Dates: start: 20161104
  4. ORENITRAM [Concomitant]
     Active Substance: TREPROSTINIL
     Dosage: 15 MG, UNK
  5. REMODULIN [Suspect]
     Active Substance: TREPROSTINIL
     Dosage: 48.1 NG/KG, PER MIN
     Route: 058
  6. ORENITRAM [Concomitant]
     Active Substance: TREPROSTINIL
     Dosage: 10 UNK, UNK

REACTIONS (19)
  - Hospitalisation [Unknown]
  - Infusion site pain [Unknown]
  - Headache [Not Recovered/Not Resolved]
  - Burning sensation [Unknown]
  - Retching [Not Recovered/Not Resolved]
  - Insomnia [Recovering/Resolving]
  - Influenza like illness [Unknown]
  - Dyspnoea [Unknown]
  - Diarrhoea [Recovering/Resolving]
  - Anxiety [Recovering/Resolving]
  - Skin tightness [Recovering/Resolving]
  - Pain [Unknown]
  - Nausea [Not Recovered/Not Resolved]
  - Oedema peripheral [Recovering/Resolving]
  - Dyspepsia [Unknown]
  - Arthralgia [Unknown]
  - Flushing [Unknown]
  - Chest pain [Unknown]
  - Pain in extremity [Unknown]

NARRATIVE: CASE EVENT DATE: 20180327
